FAERS Safety Report 8746241 (Version 3)
Quarter: 2012Q4

REPORT INFORMATION
  Report Type: Report from Study
  Country: US (occurrence: US)
  Receive Date: 20120827
  Receipt Date: 20121105
  Transmission Date: 20130627
  Serious: Yes (Hospitalization)
  Sender: FDA-Public Use
  Company Number: US-JNJFOC-20120810685

PATIENT
  Age: 16 Year
  Sex: Female
  Weight: 42 kg

DRUGS (5)
  1. REMICADE [Suspect]
     Indication: INFLAMMATORY BOWEL DISEASE
     Route: 042
     Dates: start: 20091029
  2. AZATHIOPRINE [Concomitant]
  3. MIRALAX [Concomitant]
  4. VITAMIN D [Concomitant]
  5. ANTIBIOTICS [Concomitant]

REACTIONS (1)
  - Female genital tract fistula [Recovered/Resolved]
